FAERS Safety Report 6133502-0 (Version None)
Quarter: 2009Q1

REPORT INFORMATION
  Report Type: 
  Country: None (occurrence: None)
  Receive Date: 20090325
  Receipt Date: 20090325
  Transmission Date: 20090719
  Serious: Yes (Hospitalization)
  Sender: FDA-Public Use
  Company Number: None

PATIENT
  Sex: Female
  Weight: 74.5 kg

DRUGS (2)
  1. CARBOPLATIN [Suspect]
     Dosage: 585 MG
     Dates: start: 20070424, end: 20070424
  2. TAXOL [Suspect]
     Dosage: 310 MG
     Dates: end: 20070424

REACTIONS (3)
  - ABDOMINAL PAIN [None]
  - CONSTIPATION [None]
  - MYALGIA [None]
